FAERS Safety Report 4855899-1 (Version None)
Quarter: 2005Q4

REPORT INFORMATION
  Report Type: 
  Country: None (occurrence: None)
  Receive Date: 20051216
  Receipt Date: 20051214
  Transmission Date: 20060501
  Serious: Yes (Other)
  Sender: FDA-Public Use
  Company Number: US-GLAXOSMITHKLINE-A0585846A

PATIENT
  Sex: Male

DRUGS (2)
  1. PAROXETINE HCL [Suspect]
     Dosage: 20MG PER DAY
     Route: 048
  2. PAXIL [Suspect]
     Dosage: 20MG UNKNOWN
     Route: 065
     Dates: start: 20040101

REACTIONS (3)
  - ANXIETY [None]
  - DEPENDENCE [None]
  - DRUG INEFFECTIVE [None]
